FAERS Safety Report 5262498-9 (Version None)
Quarter: 2007Q1

REPORT INFORMATION
  Report Type: 
  Country: None (occurrence: None)
  Receive Date: 20070308
  Receipt Date: 20070308
  Transmission Date: 20070707
  Serious: Yes (Hospitalization)
  Sender: FDA-Public Use
  Company Number: None

PATIENT
  Sex: Male
  Weight: 87.5442 kg

DRUGS (2)
  1. DOCETAXEL [Suspect]
     Indication: NEOPLASM MALIGNANT
     Dosage: 121 MG IV/EVERY 3 WEEKS
     Route: 042
     Dates: start: 20070111
  2. CISPLATIN [Suspect]
     Indication: NEOPLASM MALIGNANT
     Dosage: 151 MG IV/EVERY 3 WEEKS
     Route: 042
     Dates: start: 20070111

REACTIONS (4)
  - ANAEMIA [None]
  - GASTRIC ULCER HAEMORRHAGE [None]
  - HYPOVOLAEMIA [None]
  - MYOCARDIAL INFARCTION [None]
